FAERS Safety Report 5909191-4 (Version None)
Quarter: 2008Q4

REPORT INFORMATION
  Report Type: 
  Country: None (occurrence: None)
  Receive Date: 20081006
  Receipt Date: 20080929
  Transmission Date: 20090506
  Serious: Yes (Other)
  Sender: FDA-Public Use
  Company Number: PHEH2008US08675

PATIENT
  Sex: Female

DRUGS (2)
  1. EXFORGE [Suspect]
     Dosage: 10/160 MG, UNK
  2. EXFORGE [Suspect]
     Dosage: 5/160 MG, UNK

REACTIONS (3)
  - CAPILLARY DISORDER [None]
  - EYE HAEMORRHAGE [None]
  - OEDEMA PERIPHERAL [None]
